FAERS Safety Report 20840937 (Version 1)
Quarter: 2022Q2

REPORT INFORMATION
  Report Type: Spontaneous
  Country: US (occurrence: US)
  Receive Date: 20220517
  Receipt Date: 20220517
  Transmission Date: 20220721
  Serious: Yes (Death, Hospitalization)
  Sender: FDA-Public Use
  Company Number: US-BAYER-2022A070285

PATIENT
  Age: 91 Year
  Sex: Male

DRUGS (1)
  1. NUBEQA [Suspect]
     Active Substance: DAROLUTAMIDE
     Indication: Prostate cancer
     Dosage: 300 MG, BID
     Route: 048
     Dates: start: 20220330, end: 20220506

REACTIONS (2)
  - Cerebrovascular accident [Fatal]
  - Off label use [None]

NARRATIVE: CASE EVENT DATE: 20220507
